FAERS Safety Report 14688863 (Version 1)
Quarter: 2018Q1

REPORT INFORMATION
  Report Type: Spontaneous
  Country: US (occurrence: US)
  Receive Date: 20180328
  Receipt Date: 20180328
  Transmission Date: 20180509
  Serious: No
  Sender: FDA-Public Use
  Company Number: US-ALK-ABELLO A/S-2017AA004474

PATIENT

DRUGS (2)
  1. DAE BULK 691 GLYCINE MAX [Suspect]
     Active Substance: ALLERGENIC EXTRACTS
     Dosage: UNK
  2. DAE BULK 691 GLYCINE MAX [Suspect]
     Active Substance: ALLERGENIC EXTRACTS
     Dosage: UNK

REACTIONS (1)
  - False positive investigation result [Unknown]
